FAERS Safety Report 8074866-0 (Version None)
Quarter: 2012Q1

REPORT INFORMATION
  Report Type: 
  Country: None (occurrence: None)
  Receive Date: 20120126
  Receipt Date: 20120117
  Transmission Date: 20120608
  Serious: Yes (Other)
  Sender: FDA-Public Use
  Company Number: US-ASTRAZENECA-2012SE03776

PATIENT
  Age: 56 Year
  Sex: Male

DRUGS (2)
  1. SEROQUEL [Suspect]
     Indication: DEPRESSION
     Route: 048
  2. CRESTOR [Suspect]
     Route: 048

REACTIONS (1)
  - BACK INJURY [None]
